FAERS Safety Report 9862963 (Version 2)
Quarter: 2014Q1

REPORT INFORMATION
  Report Type: Spontaneous
  Country: IT (occurrence: IT)
  Receive Date: 20140203
  Receipt Date: 20140212
  Transmission Date: 20141002
  Serious: Yes (Hospitalization)
  Sender: FDA-Public Use
  Company Number: PHHY2014IT009741

PATIENT
  Age: 89 Year
  Sex: Female

DRUGS (8)
  1. LEVOFLOXACIN [Suspect]
     Indication: URINARY TRACT INFECTION
     Dosage: 500 MG, QD
     Route: 048
     Dates: start: 20131121, end: 20131124
  2. NORMIX [Concomitant]
     Dosage: 400 MG,
     Route: 048
  3. ACEQUIDE [Concomitant]
     Indication: HYPERTENSION
     Dosage: 32.5 MG
     Route: 048
  4. PANTOPAN [Concomitant]
     Dosage: 20 MG
     Route: 048
  5. DEURSIL [Concomitant]
     Indication: CHOLELITHIASIS
  6. CARDURA [Concomitant]
  7. LASIX [Concomitant]
  8. ACETYLSALICYLIC ACID [Concomitant]
     Indication: CEREBROVASCULAR ACCIDENT
     Dosage: 100 MG, UNK
     Route: 048

REACTIONS (3)
  - Disorientation [Recovered/Resolved]
  - Confusional state [Recovered/Resolved]
  - Hallucination, visual [Recovered/Resolved]
